FAERS Safety Report 14366127 (Version 2)
Quarter: 2018Q2

REPORT INFORMATION
  Report Type: Report from Study
  Country: US (occurrence: US)
  Receive Date: 20180109
  Receipt Date: 20180508
  Transmission Date: 20180711
  Serious: Yes (Life-Threatening, Hospitalization, Other)
  Sender: FDA-Public Use
  Company Number: US-TESARO, INC-US-2018TSO00074

PATIENT

DRUGS (3)
  1. ZEJULA [Suspect]
     Active Substance: NIRAPARIB
     Dosage: 200 MG, QD
     Route: 048
     Dates: start: 20171218, end: 20171229
  2. ZEJULA [Suspect]
     Active Substance: NIRAPARIB
     Indication: OVARIAN CANCER
     Dosage: 300 MG, UNK
     Route: 065
     Dates: start: 20171128
  3. ZEJULA [Suspect]
     Active Substance: NIRAPARIB
     Dosage: 200 MG, QD
     Route: 048

REACTIONS (8)
  - Constipation [Unknown]
  - Neutropenia [Unknown]
  - Hypertension [Unknown]
  - Tachycardia [Unknown]
  - White blood cell count decreased [Unknown]
  - Diabetes mellitus [Unknown]
  - Asthenia [Unknown]
  - Hypoglycaemia [Not Recovered/Not Resolved]
